FAERS Safety Report 21482663 (Version 1)
Quarter: 2022Q4

REPORT INFORMATION
  Report Type: Spontaneous
  Country: US (occurrence: US)
  Receive Date: 20221020
  Receipt Date: 20221020
  Transmission Date: 20230113
  Serious: No
  Sender: FDA-Public Use
  Company Number: US-KYOWAKIRIN-2022BKK016269

PATIENT

DRUGS (1)
  1. NOURIANZ [Suspect]
     Active Substance: ISTRADEFYLLINE
     Indication: Parkinson^s disease
     Dosage: 20 MG, QD (20 MG: TAKE 1 TABLET BY MOUTH DAILY)
     Route: 048
     Dates: start: 20221014

REACTIONS (2)
  - Catatonia [Not Recovered/Not Resolved]
  - Asthenia [Not Recovered/Not Resolved]
